FAERS Safety Report 25355779 (Version 1)
Quarter: 2025Q2

REPORT INFORMATION
  Report Type: Spontaneous
  Country: GB (occurrence: GB)
  Receive Date: 20250525
  Receipt Date: 20250525
  Transmission Date: 20250716
  Serious: Yes (Disabling)
  Sender: DR REDDYS
  Company Number: None

PATIENT
  Age: 73 Year
  Sex: Male
  Weight: 68 kg

DRUGS (2)
  1. FAMOTIDINE [Suspect]
     Active Substance: FAMOTIDINE
     Indication: Oesophageal spasm
     Dosage: 20MG MANE
     Dates: end: 20250303
  2. ATORVASTATIN [Concomitant]
     Active Substance: ATORVASTATIN
     Indication: Hypercholesterolaemia

REACTIONS (1)
  - Migraine with aura [Recovered/Resolved]

NARRATIVE: CASE EVENT DATE: 20240901
